FAERS Safety Report 8066023-9 (Version None)
Quarter: 2012Q1

REPORT INFORMATION
  Report Type: 
  Country: None (occurrence: None)
  Receive Date: 20120124
  Receipt Date: 20120113
  Transmission Date: 20120608
  Serious: Yes (Death)
  Sender: FDA-Public Use
  Company Number: US-NOVOPROD-343060

PATIENT
  Sex: Male

DRUGS (1)
  1. NOVOSEVEN RT [Suspect]
     Indication: ECCHYMOSIS
     Dosage: UNKNOWN
     Route: 042
     Dates: start: 20111201

REACTIONS (1)
  - DEATH [None]
